FAERS Safety Report 19879617 (Version 1)
Quarter: 2021Q3

REPORT INFORMATION
  Report Type: Spontaneous
  Country: US (occurrence: US)
  Receive Date: 20210924
  Receipt Date: 20210924
  Transmission Date: 20211014
  Serious: Yes (Death)
  Sender: FDA-Public Use
  Company Number: None

PATIENT
  Age: 68 Year

DRUGS (6)
  1. GABAPENTIN. [Concomitant]
     Active Substance: GABAPENTIN
  2. LEVOTHYROXIN [Concomitant]
     Active Substance: LEVOTHYROXINE
  3. OXYCONTIN [Concomitant]
     Active Substance: OXYCODONE HYDROCHLORIDE
  4. SUCRALFATE. [Concomitant]
     Active Substance: SUCRALFATE
  5. ASPIRIN. [Concomitant]
     Active Substance: ASPIRIN
  6. CAPECITABINE 500 MG [Suspect]
     Active Substance: CAPECITABINE
     Indication: GALLBLADDER CANCER
     Dates: end: 20210923

REACTIONS (1)
  - Death [None]

NARRATIVE: CASE EVENT DATE: 20210923
